FAERS Safety Report 11753893 (Version 2)
Quarter: 2015Q4

REPORT INFORMATION
  Report Type: Spontaneous
  Country: US (occurrence: US)
  Receive Date: 20151119
  Receipt Date: 20151212
  Transmission Date: 20160304
  Serious: Yes (Hospitalization)
  Sender: FDA-Public Use
  Company Number: US-ASTRAZENECA-2015SF09802

PATIENT
  Age: 73 Year
  Sex: Male
  Weight: 81.8 kg

DRUGS (20)
  1. XARELTO [Concomitant]
     Active Substance: RIVAROXABAN
     Dates: start: 201504
  2. METFORMIN HYDROCHLORIDE. [Concomitant]
     Active Substance: METFORMIN HYDROCHLORIDE
     Dates: start: 2009
  3. MAGNESIUM [Concomitant]
     Active Substance: MAGNESIUM
     Dates: start: 2009
  4. SYMBICORT [Suspect]
     Active Substance: BUDESONIDE\FORMOTEROL FUMARATE DIHYDRATE
     Dosage: 160/4.5 2 DF TWO TIMES DAILY
     Route: 055
     Dates: start: 20140820
  5. LISINOPRIL. [Suspect]
     Active Substance: LISINOPRIL
     Route: 048
     Dates: start: 201504
  6. ASPIRIN. [Concomitant]
     Active Substance: ASPIRIN
     Dates: start: 2009
  7. PROPRANOLOL [Concomitant]
     Active Substance: PROPRANOLOL\PROPRANOLOL HYDROCHLORIDE
     Dates: start: 201509
  8. ZOLPIDEM [Concomitant]
     Active Substance: ZOLPIDEM\ZOLPIDEM TARTRATE
     Dates: start: 201509
  9. LEVOTHYROXINE SODIUM. [Concomitant]
     Active Substance: LEVOTHYROXINE SODIUM
     Dates: start: 201201
  10. HYDROCODONE [Concomitant]
     Active Substance: HYDROCODONE
     Dates: start: 201504
  11. TRICOR [Concomitant]
     Active Substance: FENOFIBRATE
     Dates: start: 2005
  12. SPIRIVA [Suspect]
     Active Substance: TIOTROPIUM BROMIDE MONOHYDRATE
     Indication: CHRONIC OBSTRUCTIVE PULMONARY DISEASE
     Route: 055
     Dates: start: 20150107
  13. DULOXETINE HYDROCHLORIDE. [Concomitant]
     Active Substance: DULOXETINE HYDROCHLORIDE
     Dates: start: 201504
  14. ATORVASTATIN [Concomitant]
     Active Substance: ATORVASTATIN
     Dates: start: 2005
  15. ISOSORBIDE DINITRATE. [Concomitant]
     Active Substance: ISOSORBIDE DINITRATE
     Dates: start: 2009
  16. KLOR-CON [Concomitant]
     Active Substance: POTASSIUM CHLORIDE
     Dates: start: 2009
  17. LEVEMIR [Concomitant]
     Active Substance: INSULIN DETEMIR
  18. VENTOLIN [Suspect]
     Active Substance: ALBUTEROL SULFATE
     Route: 065
     Dates: start: 20141205
  19. GABAPENTIN. [Concomitant]
     Active Substance: GABAPENTIN
     Dates: start: 2011
  20. DULAGLUTIDE. [Concomitant]
     Active Substance: DULAGLUTIDE
     Dates: start: 201508

REACTIONS (1)
  - Chronic obstructive pulmonary disease [Not Recovered/Not Resolved]

NARRATIVE: CASE EVENT DATE: 20151018
